FAERS Safety Report 6269112-4 (Version None)
Quarter: 2009Q3

REPORT INFORMATION
  Report Type: 
  Country: None (occurrence: None)
  Receive Date: 20090715
  Receipt Date: 20090701
  Transmission Date: 20100115
  Serious: Yes (Life-Threatening, Disabling)
  Sender: FDA-Public Use
  Company Number: SE-MERCK-98097275

PATIENT
  Age: 12 Year
  Sex: Male

DRUGS (4)
  1. SINGULAIR [Suspect]
     Indication: ASTHMA
     Route: 048
     Dates: start: 19980310, end: 19980831
  2. BUDESONIDE [Concomitant]
     Route: 065
     Dates: start: 19950101
  3. SALMETEROL [Concomitant]
     Route: 065
     Dates: start: 19950101
  4. ALBUTEROL [Concomitant]
     Route: 065
     Dates: start: 19960101

REACTIONS (2)
  - DEPRESSION [None]
  - SUICIDAL IDEATION [None]
